FAERS Safety Report 5766089-2 (Version None)
Quarter: 2008Q2

REPORT INFORMATION
  Report Type: 
  Country: None (occurrence: None)
  Receive Date: 20080611
  Receipt Date: 20080606
  Transmission Date: 20081010
  Serious: Yes (Death)
  Sender: FDA-Public Use
  Company Number: JP-SANOFI-SYNTHELABO-A01200804696

PATIENT
  Sex: Male
  Weight: 45.7 kg

DRUGS (3)
  1. GLYSENNID [Concomitant]
     Indication: CONSTIPATION
     Route: 048
     Dates: start: 20080204, end: 20080417
  2. PLAVIX [Suspect]
     Indication: CEREBRAL INFARCTION
     Route: 048
     Dates: start: 20080307, end: 20080425
  3. ROHYPNOL [Concomitant]
     Indication: INSOMNIA
     Route: 048
     Dates: start: 20080225, end: 20080417

REACTIONS (2)
  - INTERSTITIAL LUNG DISEASE [None]
  - PANCYTOPENIA [None]
